FAERS Safety Report 24408585 (Version 1)
Quarter: 2024Q4

REPORT INFORMATION
  Report Type: Spontaneous
  Country: CN (occurrence: CN)
  Receive Date: 20241007
  Receipt Date: 20241007
  Transmission Date: 20250114
  Serious: Yes (Hospitalization, Other)
  Sender: NOVARTIS
  Company Number: CN-002147023-NVSC2024CN193714

PATIENT
  Age: 50 Year
  Sex: Female
  Weight: 56 kg

DRUGS (1)
  1. RIBOCICLIB [Suspect]
     Active Substance: RIBOCICLIB
     Indication: Neoplasm
     Dosage: 600 MG
     Route: 048
     Dates: start: 20240831, end: 20240921

REACTIONS (2)
  - Myelosuppression [Recovering/Resolving]
  - Drug-induced liver injury [Unknown]

NARRATIVE: CASE EVENT DATE: 20240921
